FAERS Safety Report 18817230 (Version 2)
Quarter: 2021Q4

REPORT INFORMATION
  Report Type: Report from Study
  Country: US (occurrence: US)
  Receive Date: 20210201
  Receipt Date: 20211108
  Transmission Date: 20220303
  Serious: Yes (Hospitalization)
  Sender: FDA-Public Use
  Company Number: US-KARYOPHARM-2020KPT001550

PATIENT
  Age: 65 Year
  Sex: Female

DRUGS (41)
  1. SELINEXOR [Suspect]
     Active Substance: SELINEXOR
     Indication: Breast cancer
     Dosage: 80 MG, WEEKLY
     Route: 048
     Dates: start: 20201111, end: 20201216
  2. SELINEXOR [Suspect]
     Active Substance: SELINEXOR
     Dosage: UNK
  3. ERIBULIN [Suspect]
     Active Substance: ERIBULIN
     Indication: Breast cancer
     Dosage: 1 MG/M2, DAYS 1 AND 8 OF  21 DAY CYCLE
     Route: 042
     Dates: start: 20201111, end: 20201216
  4. TRAVOPROST [Concomitant]
     Active Substance: TRAVOPROST
     Indication: Glaucoma
     Dosage: 1 DOSAGE FORM, QD
     Route: 047
     Dates: start: 2015
  5. OXYCODONE [Concomitant]
     Active Substance: OXYCODONE
     Indication: Tumour pain
     Dosage: 18 MG, BID
     Route: 048
     Dates: start: 201912
  6. OXYCODONE [Concomitant]
     Active Substance: OXYCODONE
     Dosage: 10 MG, PRN
     Route: 048
     Dates: start: 201912
  7. MELOXICAM [Concomitant]
     Active Substance: MELOXICAM
     Indication: Rheumatoid arthritis
     Dosage: 15 MG, QD
     Route: 048
     Dates: start: 2012
  8. MECLIZINE HYDROCHLORIDE [Concomitant]
     Active Substance: MECLIZINE HYDROCHLORIDE
     Indication: Vertigo
     Dosage: 25 MG, PRN
     Dates: start: 201912
  9. LEVOCETIRIZINE [Concomitant]
     Active Substance: LEVOCETIRIZINE
     Indication: Seasonal allergy
     Dosage: 5 MG, QD
     Route: 048
     Dates: start: 2010
  10. FLUTICASONE [Concomitant]
     Active Substance: FLUTICASONE
     Indication: Seasonal allergy
     Dosage: 50 UG, PRN
     Route: 045
     Dates: start: 2010
  11. PANTOPRAZOLE [Concomitant]
     Active Substance: PANTOPRAZOLE
     Indication: Gastrooesophageal reflux disease
     Dosage: 40 MG, BID
     Route: 048
     Dates: start: 2013
  12. ONDANSETRON [Concomitant]
     Active Substance: ONDANSETRON
     Indication: Nausea
     Dosage: 8 MG, PRN
     Route: 048
     Dates: start: 2018
  13. ONDANSETRON [Concomitant]
     Active Substance: ONDANSETRON
     Indication: Biopsy
     Dosage: 8 MG, SINGLE
     Route: 042
     Dates: start: 20201110, end: 20201110
  14. ONDANSETRON [Concomitant]
     Active Substance: ONDANSETRON
     Dosage: 8 MG, SINGLE
     Route: 042
     Dates: start: 20201130, end: 20201130
  15. ONDANSETRON [Concomitant]
     Active Substance: ONDANSETRON
     Dosage: 8 MG
     Dates: start: 20201111
  16. TACROLIMUS [Concomitant]
     Active Substance: TACROLIMUS
     Indication: Seborrhoeic dermatitis
     Dosage: UNK, QD
     Route: 048
     Dates: start: 201906
  17. KETOCONAZOLE [Concomitant]
     Active Substance: KETOCONAZOLE
     Indication: Seborrhoeic dermatitis
     Dosage: UNK, WEEKLY
     Route: 061
     Dates: start: 2010
  18. DULAGLUTIDE [Concomitant]
     Active Substance: DULAGLUTIDE
     Indication: Type 2 diabetes mellitus
     Dosage: 1.5 MG, PRN
     Route: 058
     Dates: start: 201708
  19. EMPAGLIFLOZIN [Concomitant]
     Active Substance: EMPAGLIFLOZIN
     Indication: Type 2 diabetes mellitus
     Dosage: 25 MG, QD
     Route: 048
     Dates: start: 201708
  20. NEBIVOLOL [Concomitant]
     Active Substance: NEBIVOLOL
     Indication: Hypertension
     Dosage: 10 MG, QD
     Route: 048
     Dates: start: 2015
  21. AMLODIPINE [Concomitant]
     Active Substance: AMLODIPINE BESYLATE
     Indication: Hypertension
     Dosage: 5 MG, QD
     Route: 048
     Dates: start: 201912
  22. OLMESARTAN [Concomitant]
     Active Substance: OLMESARTAN
     Indication: Hypertension
     Dosage: 40 MG, QD
     Route: 048
     Dates: start: 201906
  23. ISOSORBIDE MONONITRATE [Concomitant]
     Active Substance: ISOSORBIDE MONONITRATE
     Indication: Chest pain
     Dosage: 120 MG, QD
     Route: 048
     Dates: start: 2017
  24. ESZOPICLONE [Concomitant]
     Active Substance: ESZOPICLONE
     Indication: Insomnia
     Dosage: 2 MG, PRN
     Route: 048
     Dates: start: 2016
  25. BUTALBITAL, ACETAMINOPHEN, AND CAFFEINE [Concomitant]
     Active Substance: ACETAMINOPHEN\BUTALBITAL\CAFFEINE
     Indication: Migraine
     Dosage: 1 DOSAGE FORM, PRN
     Route: 048
     Dates: start: 201912
  26. DULOXETINE [Concomitant]
     Active Substance: DULOXETINE
     Indication: Anxiety
     Dosage: 60 MG, BID
     Route: 048
     Dates: start: 201912
  27. DULOXETINE [Concomitant]
     Active Substance: DULOXETINE
     Indication: Depression
  28. VENTOLIN [Concomitant]
     Active Substance: ALBUTEROL SULFATE
     Indication: Asthma
     Dosage: 1 DOSAGE FORM, PRN
     Route: 048
     Dates: start: 2015
  29. GABAPENTIN [Concomitant]
     Active Substance: GABAPENTIN
     Indication: Neuropathy peripheral
     Dosage: 600 MG, QID
     Route: 048
     Dates: start: 2017
  30. TURMERIC + [Concomitant]
     Indication: Supplementation therapy
     Dosage: 500 UG, QD
     Route: 048
     Dates: start: 20200901
  31. CHOLECALCIFEROL [Concomitant]
     Active Substance: CHOLECALCIFEROL
     Indication: Supplementation therapy
     Dosage: 25 UG, QD
     Route: 048
     Dates: start: 20201106
  32. MIDAZOLAM [Concomitant]
     Active Substance: MIDAZOLAM
     Indication: Biopsy
     Dosage: 2 MG, SINGLE
     Route: 042
     Dates: start: 20201110, end: 20201110
  33. FENTANYL [Concomitant]
     Active Substance: FENTANYL
     Indication: Biopsy
     Dosage: 50 UG, PRN
     Route: 042
     Dates: start: 20201110, end: 20201110
  34. FENTANYL [Concomitant]
     Active Substance: FENTANYL
     Dosage: 25 UG, PRN
     Route: 042
     Dates: start: 20201130, end: 20201130
  35. LIDOCAINE [Concomitant]
     Active Substance: LIDOCAINE
     Indication: Biopsy
     Dosage: 10 ML, SINGLE
     Route: 042
     Dates: start: 20201110, end: 20201110
  36. LIDOCAINE [Concomitant]
     Active Substance: LIDOCAINE
     Dosage: 10 ML, SINGLE
     Route: 042
     Dates: start: 20201130, end: 20201130
  37. LORAZEPAM [Concomitant]
     Active Substance: LORAZEPAM
     Indication: Biopsy
     Dosage: 1 MG, SINGLE
     Route: 042
     Dates: start: 20201130, end: 20201130
  38. DEXAMETHASONE [Concomitant]
     Active Substance: DEXAMETHASONE
     Indication: Prophylaxis
     Dosage: 10 MG
     Route: 042
     Dates: start: 20201111
  39. DEXAMETHASONE [Concomitant]
     Active Substance: DEXAMETHASONE
     Dosage: 4 MG
     Route: 048
     Dates: start: 20201123
  40. OLANZAPINE [Concomitant]
     Active Substance: OLANZAPINE
     Indication: Nausea
     Dosage: 2.5 MG, QD
     Route: 048
     Dates: start: 20201111, end: 20201116
  41. OLANZAPINE [Concomitant]
     Active Substance: OLANZAPINE
     Dosage: 5 MG, BID
     Route: 048
     Dates: start: 20201116

REACTIONS (1)
  - Nausea [Recovered/Resolved]

NARRATIVE: CASE EVENT DATE: 20201209
